FAERS Safety Report 23649098 (Version 3)
Quarter: 2024Q2

REPORT INFORMATION
  Report Type: Spontaneous
  Country: JP (occurrence: JP)
  Receive Date: 20240319
  Receipt Date: 20240613
  Transmission Date: 20240715
  Serious: Yes (Death, Other)
  Sender: FDA-Public Use
  Company Number: JP-AstraZeneca-CH-00584508A

PATIENT
  Age: 6 Decade
  Sex: Female

DRUGS (1)
  1. ULTOMIRIS [Suspect]
     Active Substance: RAVULIZUMAB-CWVZ
     Indication: Atypical haemolytic uraemic syndrome
     Dosage: 2700 MILLIGRAM, Q56
     Route: 041
     Dates: start: 20231025, end: 20240423

REACTIONS (3)
  - Cerebral infarction [Fatal]
  - Condition aggravated [Fatal]
  - Loss of consciousness [Unknown]
